FAERS Safety Report 6689665-1 (Version None)
Quarter: 2010Q2

REPORT INFORMATION
  Report Type: 
  Country: None (occurrence: None)
  Receive Date: 20100421
  Receipt Date: 20100412
  Transmission Date: 20101027
  Serious: No
  Sender: FDA-Public Use
  Company Number: 2009BI036738

PATIENT
  Sex: Male

DRUGS (2)
  1. TYSABRI [Suspect]
     Indication: MULTIPLE SCLEROSIS
     Route: 042
     Dates: start: 20090301, end: 20090601
  2. TYSABRI [Suspect]
     Route: 042
     Dates: start: 20090801

REACTIONS (5)
  - AMNESIA [None]
  - DEPRESSION [None]
  - FATIGUE [None]
  - MUSCLE SPASTICITY [None]
  - TEMPERATURE INTOLERANCE [None]
